FAERS Safety Report 15285348 (Version 1)
Quarter: 2018Q3

REPORT INFORMATION
  Report Type: Spontaneous
  Country: US (occurrence: US)
  Receive Date: 20180816
  Receipt Date: 20180816
  Transmission Date: 20181010
  Serious: No
  Sender: FDA-Public Use
  Company Number: PHEH2018US033633

PATIENT
  Sex: Male

DRUGS (1)
  1. SIMBRINZA [Suspect]
     Active Substance: BRIMONIDINE TARTRATE\BRINZOLAMIDE
     Indication: OCULAR HYPERTENSION
     Dosage: UNK
     Route: 047
     Dates: start: 20171111, end: 201804

REACTIONS (16)
  - Dry eye [Unknown]
  - Depression [Unknown]
  - Visual acuity reduced [Unknown]
  - Heart rate decreased [Unknown]
  - Constipation [Unknown]
  - Nightmare [Unknown]
  - Corneal erosion [Unknown]
  - Irritability [Unknown]
  - Diplopia [Unknown]
  - Insomnia [Unknown]
  - Visual impairment [Unknown]
  - Asthenia [Unknown]
  - Dizziness [Unknown]
  - Apathy [Unknown]
  - Night blindness [Unknown]
  - Photophobia [Unknown]
